FAERS Safety Report 6688931-3 (Version None)
Quarter: 2010Q2

REPORT INFORMATION
  Report Type: 
  Country: None (occurrence: None)
  Receive Date: 20100420
  Receipt Date: 20100406
  Transmission Date: 20101027
  Serious: Yes (Hospitalization, Other)
  Sender: FDA-Public Use
  Company Number: US-ELI_LILLY_AND_COMPANY-US201004002969

PATIENT
  Sex: Female

DRUGS (5)
  1. FORTEO [Suspect]
     Indication: OSTEOPOROSIS
     Dosage: 20 UG, DAILY (1/D)
     Dates: start: 20100301
  2. PRILOSEC [Concomitant]
  3. SYMBICORT [Concomitant]
  4. VENTOLIN [Concomitant]
  5. CARAFATE [Concomitant]

REACTIONS (3)
  - FALL [None]
  - HIP FRACTURE [None]
  - THROMBOSIS [None]
